FAERS Safety Report 22299580 (Version 1)
Quarter: 2023Q2

REPORT INFORMATION
  Report Type: Spontaneous
  Country: US (occurrence: None)
  Receive Date: 20230508
  Receipt Date: 20230508
  Transmission Date: 20230722
  Serious: No
  Sender: FDA-Public Use
  Company Number: None

PATIENT
  Sex: Male
  Weight: 27 kg

DRUGS (8)
  1. ACYCLOVIR [Suspect]
     Active Substance: ACYCLOVIR
     Indication: Oral herpes
     Dosage: FREQUENCY : EVERY 8 HOURS;?
     Route: 048
     Dates: start: 20210901, end: 20230201
  2. SINGULAIR [Concomitant]
     Active Substance: MONTELUKAST SODIUM
  3. CETIRIZINE [Concomitant]
     Active Substance: CETIRIZINE HYDROCHLORIDE
  4. MIRALAX [Concomitant]
     Active Substance: POLYETHYLENE GLYCOL 3350
  5. FLOVENT [Concomitant]
     Active Substance: FLUTICASONE PROPIONATE
  6. ALBUTEROL SULFATE [Concomitant]
     Active Substance: ALBUTEROL SULFATE
  7. CHILDREN^S MULTIVITAMIN [Concomitant]
  8. MELATONIN [Concomitant]
     Active Substance: MELATONIN

REACTIONS (4)
  - Headache [None]
  - Pain in extremity [None]
  - Gastric disorder [None]
  - Hypophagia [None]
